FAERS Safety Report 17407955 (Version 1)
Quarter: 2020Q1

REPORT INFORMATION
  Report Type: Spontaneous
  Country: US (occurrence: US)
  Receive Date: 20200212
  Receipt Date: 20200212
  Transmission Date: 20200409
  Serious: No
  Sender: FDA-Public Use
  Company Number: US-PFIZER INC-2020056461

PATIENT
  Age: 39 Year
  Sex: Female

DRUGS (2)
  1. TOFACITINIB [Suspect]
     Active Substance: TOFACITINIB
     Indication: PSORIASIS
     Dosage: UNK
     Route: 061
  2. TOFACITINIB [Suspect]
     Active Substance: TOFACITINIB
     Indication: ALOPECIA AREATA

REACTIONS (3)
  - Off label use [Unknown]
  - Rash [Unknown]
  - Drug ineffective for unapproved indication [Unknown]
